FAERS Safety Report 10047515 (Version 1)
Quarter: 2014Q1

REPORT INFORMATION
  Report Type: Spontaneous
  Country: US (occurrence: None)
  Receive Date: 20140327
  Receipt Date: 20140327
  Transmission Date: 20141002
  Serious: Yes (Hospitalization, Other)
  Sender: FDA-Public Use
  Company Number: UTC-046073

PATIENT
  Age: 73 Year
  Sex: Female

DRUGS (7)
  1. REMODULIN [Suspect]
     Indication: COR PULMONALE CHRONIC
     Dosage: 0.011 UG/KG, 1 IN 1 MIN
     Route: 042
     Dates: start: 20140307
  2. ADCIRCA (TADALAFIL) (40 MILLIGRAM, UNKNOWN) [Concomitant]
  3. WARFARIN (WARFARIN) (UNKNOWN) [Concomitant]
  4. PLAVIX (CLOPIDOGREL) (UNKNOWN) [Concomitant]
  5. TRIAMTERENE/HCTZ (DYAZIDE) (UNKNOWN) [Concomitant]
  6. PROCARDIA (NIFEDIPINE) (UNKNOWN) (NIFEDIPINE) [Concomitant]
  7. LEVOTHYROXINE (LEVOTHYROXINE) (UNKNOWN) [Concomitant]

REACTIONS (3)
  - Pulmonary arterial hypertension [None]
  - Pneumonia [None]
  - Drug dose omission [None]
